FAERS Safety Report 7742170-3 (Version None)
Quarter: 2011Q3

REPORT INFORMATION
  Report Type: 
  Country: None (occurrence: None)
  Receive Date: 20110912
  Receipt Date: 20110901
  Transmission Date: 20111222
  Serious: Yes (Other)
  Sender: FDA-Public Use
  Company Number: CA-JNJFOC-20110901976

PATIENT
  Weight: 106 kg

DRUGS (1)
  1. REMICADE [Suspect]
     Indication: ANKYLOSING SPONDYLITIS
     Route: 042
     Dates: start: 20080201

REACTIONS (4)
  - HYPERTENSION [None]
  - NECK PAIN [None]
  - PAIN IN JAW [None]
  - HEART RATE INCREASED [None]
